FAERS Safety Report 24098365 (Version 1)
Quarter: 2024Q3

REPORT INFORMATION
  Report Type: Spontaneous
  Country: US (occurrence: US)
  Receive Date: 20240716
  Receipt Date: 20240716
  Transmission Date: 20241017
  Serious: No
  Sender: BRISTOL MYERS SQUIBB
  Company Number: US-BRISTOL-MYERS SQUIBB COMPANY-2024-112431

PATIENT
  Age: 75 Year
  Sex: Female
  Weight: 78.02 kg

DRUGS (1)
  1. ORENCIA [Suspect]
     Active Substance: ABATACEPT
     Indication: Rheumatoid arthritis
     Dosage: DOSE : 750 MG;     FREQ : EVERY 30 DAYS
     Route: 042
     Dates: start: 202312

REACTIONS (2)
  - Poor venous access [Unknown]
  - Off label use [Unknown]
